FAERS Safety Report 10083746 (Version 1)
Quarter: 2014Q2

REPORT INFORMATION
  Report Type: Spontaneous
  Country: JP (occurrence: JP)
  Receive Date: 20140417
  Receipt Date: 20140417
  Transmission Date: 20141212
  Serious: Yes (Hospitalization, Other)
  Sender: FDA-Public Use
  Company Number: PHHY2014JP045600

PATIENT
  Age: 45 Year
  Sex: Male

DRUGS (6)
  1. GILENYA [Suspect]
     Indication: MULTIPLE SCLEROSIS RELAPSE PROPHYLAXIS
     Dosage: 0.5 MG, QD
     Route: 048
     Dates: start: 20130716, end: 20130809
  2. GILENYA [Suspect]
     Dosage: 0.5 MG, QD
     Route: 048
     Dates: start: 20130822
  3. JANUVIA [Concomitant]
     Indication: DIABETES MELLITUS
  4. MAGLAX [Concomitant]
  5. NEXIUM//ESOMEPRAZOLE MAGNESIUM [Concomitant]
     Indication: GASTRITIS
  6. MYTEAR [Concomitant]

REACTIONS (7)
  - Central nervous system lesion [Recovering/Resolving]
  - CSF oligoclonal band present [Unknown]
  - Gait disturbance [Recovering/Resolving]
  - Hypoaesthesia [Recovering/Resolving]
  - Visual impairment [Recovering/Resolving]
  - Visual acuity reduced [Recovering/Resolving]
  - Asthenia [Unknown]
